FAERS Safety Report 16111010 (Version 1)
Quarter: 2019Q1

REPORT INFORMATION
  Report Type: Spontaneous
  Country: US (occurrence: US)
  Receive Date: 20190221
  Receipt Date: 20190221
  Transmission Date: 20190418
  Serious: No
  Sender: FDA-Public Use
  Company Number: None

PATIENT
  Age: 64 Year
  Sex: Female

DRUGS (1)
  1. OCALIVA [Suspect]
     Active Substance: OBETICHOLIC ACID
     Indication: PRIMARY BILIARY CHOLANGITIS
     Dosage: 16.BEN.19 TO PRESENT
     Route: 048
     Dates: start: 20190216

REACTIONS (2)
  - Bone pain [None]
  - Asthenia [None]

NARRATIVE: CASE EVENT DATE: 20190216
